FAERS Safety Report 4611345-4 (Version None)
Quarter: 2005Q1

REPORT INFORMATION
  Report Type: 
  Country: None (occurrence: None)
  Receive Date: 20050317
  Receipt Date: 20050218
  Transmission Date: 20050727
  Serious: Yes (Life-Threatening, Hospitalization)
  Sender: FDA-Public Use
  Company Number: BE-BRISTOL-MYERS SQUIBB COMPANY-12870051

PATIENT
  Age: 74 Year
  Sex: Female

DRUGS (19)
  1. VINFLUNINE IV [Suspect]
     Indication: BREAST CANCER METASTATIC
     Dosage: INITIATED ON 09-FEB-2005.
     Route: 042
     Dates: start: 20050209, end: 20050209
  2. DOXORUBICIN HCL [Suspect]
     Indication: BREAST CANCER METASTATIC
     Dosage: INITIATED ON 09-FEB-2005. REDUCED TO 40MG/M2 (FOR NEXT CYCLE)
     Route: 042
     Dates: start: 20050209, end: 20050209
  3. ELTHYRONE [Concomitant]
     Dates: start: 19970101
  4. MOVICOL [Concomitant]
     Dates: start: 20050204
  5. ATACAND [Concomitant]
  6. NOVABAN [Concomitant]
     Dates: start: 20050211, end: 20050212
  7. LAXOBERON [Concomitant]
     Dates: start: 20050214
  8. LITICAN [Concomitant]
     Dates: start: 20050214
  9. DURAGESIC-100 [Concomitant]
     Dates: start: 20050127, end: 20050203
  10. DAFALGAN FORTE [Concomitant]
     Dates: start: 20050127
  11. STEOVIT D3 [Concomitant]
  12. OMEPRAZOLE [Concomitant]
     Dates: end: 20050203
  13. ZOMETA [Concomitant]
     Dates: start: 20050204
  14. LOGASTRIC [Concomitant]
     Dates: start: 20050203, end: 20050214
  15. CLEXANE [Concomitant]
     Dates: start: 20050203
  16. MORPHINE [Concomitant]
     Dates: start: 20050204, end: 20050212
  17. MS CONTIN [Concomitant]
     Dates: start: 20050203, end: 20050204
  18. MS DIRECT [Concomitant]
     Dates: start: 20050203, end: 20050214
  19. ALDACTAZINE [Concomitant]
     Dates: end: 20050205

REACTIONS (2)
  - NEUTROPENIC COLITIS [None]
  - PYREXIA [None]
